FAERS Safety Report 22901639 (Version 2)
Quarter: 2023Q4

REPORT INFORMATION
  Report Type: Spontaneous
  Country: JP (occurrence: JP)
  Receive Date: 20230904
  Receipt Date: 20231121
  Transmission Date: 20240110
  Serious: Yes (Hospitalization, Other)
  Sender: FDA-Public Use
  Company Number: JP-BRISTOL-MYERS SQUIBB COMPANY-2023-122984

PATIENT
  Age: 61 Year
  Sex: Female
  Weight: 41.1 kg

DRUGS (10)
  1. YERVOY [Suspect]
     Active Substance: IPILIMUMAB
     Indication: Malignant melanoma
     Route: 041
     Dates: start: 20230303, end: 20230303
  2. OPDIVO [Suspect]
     Active Substance: NIVOLUMAB
     Indication: Malignant melanoma
     Dosage: 480 MG/DAY ? 6?240 MG/DAY ? 3?80 MG/DAY ? 1
     Route: 041
     Dates: start: 20220728, end: 20230731
  3. CINAL [ASCORBIC ACID;CALCIUM PANTOTHENATE] [Concomitant]
     Indication: Product used for unknown indication
     Dates: start: 20230605
  4. MAGNESIUM OXIDE [Concomitant]
     Active Substance: MAGNESIUM OXIDE
     Indication: Product used for unknown indication
     Dates: start: 20220909
  5. DAYVIGO [Concomitant]
     Active Substance: LEMBOREXANT
     Indication: Product used for unknown indication
     Dates: start: 20221006
  6. SUMATRIPTANA [Concomitant]
     Indication: Product used for unknown indication
     Dates: start: 2023
  7. GASTER [Concomitant]
     Active Substance: FAMOTIDINE
     Indication: Product used for unknown indication
     Dates: start: 20230418
  8. TRANEXAMIC ACID [Concomitant]
     Active Substance: TRANEXAMIC ACID
     Indication: Product used for unknown indication
     Dates: start: 20230622
  9. RAMELTEON [Concomitant]
     Active Substance: RAMELTEON
     Indication: Product used for unknown indication
     Dates: start: 20230328
  10. CALONAL [Concomitant]
     Active Substance: ACETAMINOPHEN
     Indication: Product used for unknown indication
     Dates: start: 20230323

REACTIONS (4)
  - Interstitial lung disease [Not Recovered/Not Resolved]
  - Hypopituitarism [Recovering/Resolving]
  - Cardiac failure [Unknown]
  - Liver disorder [Unknown]

NARRATIVE: CASE EVENT DATE: 20230313
